FAERS Safety Report 8916311 (Version 1)
Quarter: 2012Q4

REPORT INFORMATION
  Report Type: 
  Country: US (occurrence: US)
  Receive Date: 20121120
  Receipt Date: 20121120
  Transmission Date: 20130627
  Serious: No
  Sender: FDA-Public Use
  Company Number: US-B.I. PHARMACEUTICALS,INC./RIDGEFIELD-2012-BI-00789BP

PATIENT
  Sex: Female
  Weight: 91 kg

DRUGS (11)
  1. PRADAXA [Suspect]
     Indication: ATRIAL FIBRILLATION
     Dosage: 300 mg
     Route: 048
     Dates: start: 2010
  2. AMIODORONE [Concomitant]
     Indication: CARDIAC DISORDER
     Dosage: 100 mg
     Route: 048
     Dates: start: 2010
  3. LECITHIN [Concomitant]
  4. MULTIVITAMIN [Concomitant]
     Indication: SUPPLEMENTATION THERAPY
     Route: 048
     Dates: start: 2010
  5. AMARYL [Concomitant]
     Indication: DIABETES MELLITUS
     Dosage: 4 mg
     Route: 048
     Dates: start: 2006
  6. DILTIAZEM [Concomitant]
     Indication: ATRIAL FIBRILLATION
     Dosage: 240 mg
     Route: 048
     Dates: start: 2010
  7. MAGNESIUM OXIDE [Concomitant]
     Indication: SUPPLEMENTATION THERAPY
     Dosage: 400 mg
     Route: 048
     Dates: start: 2010
  8. FUROSEMIDE [Concomitant]
     Indication: CARDIAC DISORDER
     Route: 048
     Dates: start: 2010
  9. RISHY OIL [Concomitant]
  10. METOPROLOL [Concomitant]
     Indication: CARDIAC DISORDER
     Dosage: 100 mg
     Route: 048
     Dates: start: 2010
  11. VITAMIN E [Concomitant]
     Indication: SUPPLEMENTATION THERAPY
     Dosage: 400 U
     Route: 048
     Dates: start: 2010

REACTIONS (1)
  - Hypoaesthesia [Not Recovered/Not Resolved]
